FAERS Safety Report 5264106-X (Version None)
Quarter: 2007Q1

REPORT INFORMATION
  Report Type: 
  Country: None (occurrence: None)
  Receive Date: 20070313
  Receipt Date: 20070301
  Transmission Date: 20070707
  Serious: Yes (Other)
  Sender: FDA-Public Use
  Company Number: US-PFIZER INC-2007003165

PATIENT
  Sex: Female
  Weight: 64.9 kg

DRUGS (11)
  1. NEURONTIN [Suspect]
     Indication: NERVE INJURY
     Route: 048
  2. NIFEDIPINE [Concomitant]
  3. METOPROLOL SUCCINATE [Concomitant]
  4. ACETYLSALICYLIC ACID SRT [Concomitant]
  5. PREVACID [Concomitant]
  6. PROCARDIA XL [Concomitant]
  7. LOPRESSOR [Concomitant]
  8. DYAZIDE [Concomitant]
  9. LIPITOR [Concomitant]
  10. VALIUM [Concomitant]
  11. FOSAMAX [Concomitant]

REACTIONS (5)
  - ACTIVITIES OF DAILY LIVING IMPAIRED [None]
  - AMNESIA [None]
  - FALL [None]
  - FATIGUE [None]
  - FEELING ABNORMAL [None]
